FAERS Safety Report 8251774-3 (Version None)
Quarter: 2012Q2

REPORT INFORMATION
  Report Type: 
  Country: None (occurrence: None)
  Receive Date: 20120402
  Receipt Date: 20120327
  Transmission Date: 20120825
  Serious: No
  Sender: FDA-Public Use
  Company Number: US-PFIZER INC-2012078687

PATIENT
  Sex: Male
  Weight: 70.295 kg

DRUGS (20)
  1. ULTRAM [Concomitant]
     Dosage: UNK
  2. LORTAB [Concomitant]
     Dosage: UNK
  3. ALBUTEROL [Concomitant]
     Dosage: UNK
  4. HALDOL [Concomitant]
     Dosage: UNK
  5. FOLIC ACID [Concomitant]
     Dosage: UNK
  6. CATAPRES [Concomitant]
     Dosage: UNK
  7. DEXTROSE 5% AND SODIUM CHLORIDE 0.45% IN PLASTIC CONTAINER [Concomitant]
     Dosage: 5 %, UNK
  8. VISTARIL [Concomitant]
     Dosage: UNK
  9. ZOFRAN [Concomitant]
     Dosage: UNK
  10. BUSPAR [Concomitant]
     Dosage: UNK
  11. PROTONIX [Concomitant]
     Dosage: UNK
  12. CYMBALTA [Concomitant]
     Dosage: UNK
  13. COZAAR [Concomitant]
     Dosage: UNK
  14. DIFLUCAN [Concomitant]
     Dosage: UNK
  15. CELEXA [Suspect]
     Dosage: UNK
  16. GEODON [Suspect]
     Indication: AGITATION
     Dosage: UNK, 1X/DAY
     Route: 042
     Dates: start: 20120326
  17. VALIUM [Concomitant]
     Dosage: UNK
  18. THIAMINE [Concomitant]
     Dosage: UNK
  19. FLEXERIL [Concomitant]
     Dosage: UNK
  20. LOPRESSOR [Concomitant]
     Dosage: UNK

REACTIONS (4)
  - BLOOD BILIRUBIN INCREASED [None]
  - INCORRECT ROUTE OF DRUG ADMINISTRATION [None]
  - ALANINE AMINOTRANSFERASE INCREASED [None]
  - ASPARTATE AMINOTRANSFERASE INCREASED [None]
